FAERS Safety Report 12674481 (Version 1)
Quarter: 2016Q3

REPORT INFORMATION
  Report Type: Spontaneous
  Country: US (occurrence: US)
  Receive Date: 20160822
  Receipt Date: 20160822
  Transmission Date: 20161109
  Serious: No
  Sender: FDA-Public Use
  Company Number: US-BEH-2016060354

PATIENT
  Sex: Female
  Weight: 77.11 kg

DRUGS (36)
  1. COENZYME [Concomitant]
     Active Substance: UBIDECARENONE
  2. PROAIR HFA [Concomitant]
     Active Substance: ALBUTEROL SULFATE
  3. MONTELUKAST [Concomitant]
     Active Substance: MONTELUKAST SODIUM
  4. TAMSULOSIN [Concomitant]
     Active Substance: TAMSULOSIN
  5. ASPIRIN. [Concomitant]
     Active Substance: ASPIRIN
  6. COUMADIN [Concomitant]
     Active Substance: WARFARIN SODIUM
  7. CHERATUSSIN [Concomitant]
     Active Substance: AMMONIUM CHLORIDE\DEXTROMETHORPHAN\SODIUM CITRATE
  8. FLONASE [Concomitant]
     Active Substance: FLUTICASONE PROPIONATE
  9. XOLAIR [Concomitant]
     Active Substance: OMALIZUMAB
  10. DULERA [Concomitant]
     Active Substance: FORMOTEROL FUMARATE DIHYDRATE\MOMETASONE FUROATE
  11. CALCIUM [Concomitant]
     Active Substance: CALCIUM
  12. FISH OIL [Concomitant]
     Active Substance: FISH OIL
  13. ZEMAIRA [Suspect]
     Active Substance: .ALPHA.1-PROTEINASE INHIBITOR HUMAN
     Indication: OBSTRUCTIVE AIRWAYS DISORDER
     Route: 042
     Dates: start: 20100210
  14. ZEMAIRA [Suspect]
     Active Substance: .ALPHA.1-PROTEINASE INHIBITOR HUMAN
     Indication: RHINITIS ALLERGIC
  15. ZEMAIRA [Suspect]
     Active Substance: .ALPHA.1-PROTEINASE INHIBITOR HUMAN
     Indication: ASTHMA
  16. ZEMAIRA [Suspect]
     Active Substance: .ALPHA.1-PROTEINASE INHIBITOR HUMAN
     Indication: SEASONAL ALLERGY
  17. MUCINEX [Concomitant]
     Active Substance: GUAIFENESIN
  18. VITAMIN D [Concomitant]
     Active Substance: CHOLECALCIFEROL
  19. ZEMAIRA [Suspect]
     Active Substance: .ALPHA.1-PROTEINASE INHIBITOR HUMAN
     Indication: ASTHMA
  20. MULTIVITAMINS [Concomitant]
     Active Substance: VITAMINS
  21. XOPENEX [Concomitant]
     Active Substance: LEVALBUTEROL HYDROCHLORIDE
  22. FUROSEMIDE. [Concomitant]
     Active Substance: FUROSEMIDE
  23. CALCIUM [Concomitant]
     Active Substance: CALCIUM
  24. FERROUS SULFATE. [Concomitant]
     Active Substance: FERROUS SULFATE
  25. CELEBREX [Concomitant]
     Active Substance: CELECOXIB
  26. OMEPRAZOLE. [Concomitant]
     Active Substance: OMEPRAZOLE
  27. SINGULAIR [Concomitant]
     Active Substance: MONTELUKAST SODIUM
  28. ENABLEX [Concomitant]
     Active Substance: DARIFENACIN HYDROBROMIDE
  29. DILTIAZEM. [Concomitant]
     Active Substance: DILTIAZEM
  30. FLUBLOK [Concomitant]
     Active Substance: INFLUENZA A VIRUS A/CALIFORNIA/7/2009 (H1N1) RECOMBINANT HEMAGGLUTININ ANTIGEN\INFLUENZA A VIRUS A/VICTORIA/361/2011 (H3N2) RECOMBINANT HEMAGGLUTININ ANTIGEN\INFLUENZA B VIRUS B/WISCONSIN/1/2010 RECOMBINANT HEMAGGLUTININ ANTIGEN
  31. KLOR-CON [Concomitant]
     Active Substance: POTASSIUM CHLORIDE
  32. VITAMIN C [Concomitant]
     Active Substance: ASCORBIC ACID
  33. VESICARE [Concomitant]
     Active Substance: SOLIFENACIN SUCCINATE
  34. TESTOSTERONE. [Concomitant]
     Active Substance: TESTOSTERONE
  35. DULERA [Concomitant]
     Active Substance: FORMOTEROL FUMARATE DIHYDRATE\MOMETASONE FUROATE
  36. ZYRTEC [Concomitant]
     Active Substance: CETIRIZINE HYDROCHLORIDE

REACTIONS (2)
  - Nasopharyngitis [Unknown]
  - Sinusitis [Unknown]
